FAERS Safety Report 10818747 (Version 2)
Quarter: 2015Q1

REPORT INFORMATION
  Report Type: Report from Study
  Country: BR (occurrence: BR)
  Receive Date: 20150218
  Receipt Date: 20150302
  Transmission Date: 20150721
  Serious: Yes (Death, Other)
  Sender: FDA-Public Use
  Company Number: PHHY2015BR018767

PATIENT
  Sex: Male
  Weight: 60 kg

DRUGS (1)
  1. EXELON [Suspect]
     Active Substance: RIVASTIGMINE TARTRATE
     Indication: PRODUCT USED FOR UNKNOWN INDICATION
     Route: 065

REACTIONS (8)
  - Neoplasm malignant [Unknown]
  - Limb injury [Unknown]
  - Purpura [Unknown]
  - Glaucoma [Unknown]
  - Pyrexia [Unknown]
  - Infarction [Fatal]
  - Diabetes mellitus [Unknown]
  - Contusion [Unknown]
